FAERS Safety Report 9725023 (Version 3)
Quarter: 2013Q4

REPORT INFORMATION
  Report Type: Report from Study
  Country: US (occurrence: US)
  Receive Date: 20131203
  Receipt Date: 20131220
  Transmission Date: 20140711
  Serious: Yes (Hospitalization)
  Sender: FDA-Public Use
  Company Number: US-PFIZER INC-2013337880

PATIENT
  Age: 71 Year
  Sex: Female
  Weight: 90.5 kg

DRUGS (6)
  1. BLINDED CELECOXIB [Suspect]
     Indication: ADENOCARCINOMA OF COLON
     Dosage: 400MG PO QD STARTING ON DAY 1 OF CYCLE 2 OF FOLFOX, CONTINUED TO 3 YEARS
     Route: 048
     Dates: start: 20110613
  2. BLINDED PLACEBO [Suspect]
     Indication: ADENOCARCINOMA OF COLON
     Dosage: 400MG PO QD STARTING ON DAY 1 OF CYCLE 2 OF FOLFOX, CONTINUED TO 3 YEARS
     Route: 048
     Dates: start: 20110613
  3. FLUOROURACIL [Suspect]
     Indication: ADENOCARCINOMA OF COLON
     Dosage: 400 MG/M2, IVP ON DAY 1 FOLLOWED BY
     Route: 042
     Dates: start: 20110613
  4. FLUOROURACIL [Suspect]
     Dosage: 2400 MG/M2, OVER 46-48 HOURS ON DAY 1
     Route: 042
     Dates: start: 20110613
  5. ELOXATIN [Suspect]
     Indication: ADENOCARCINOMA OF COLON
     Dosage: 85 MG/M2, OVER 2 HOURS ON DAY 1
     Route: 042
     Dates: start: 20110613
  6. LEUCOVORIN CALCIUM [Suspect]
     Indication: ADENOCARCINOMA OF COLON
     Dosage: 400 MG/M2, OVER 2 HOURS ON DAY 1
     Route: 042
     Dates: start: 20110613

REACTIONS (2)
  - Embolism [Recovered/Resolved with Sequelae]
  - Pulmonary hypertension [Recovered/Resolved with Sequelae]
